FAERS Safety Report 5926557-7 (Version None)
Quarter: 2008Q4

REPORT INFORMATION
  Report Type: 
  Country: None (occurrence: None)
  Receive Date: 20081022
  Receipt Date: 20081021
  Transmission Date: 20090506
  Serious: Yes (Death)
  Sender: FDA-Public Use
  Company Number: AU-BRISTOL-MYERS SQUIBB COMPANY-14376958

PATIENT
  Age: 72 Year
  Sex: Male

DRUGS (5)
  1. IRBESARTAN [Suspect]
     Route: 048
  2. NEXIUM [Concomitant]
  3. ASPIRIN [Concomitant]
  4. ACETAMINOPHEN [Concomitant]
  5. MEPRAZOL [Concomitant]

REACTIONS (3)
  - ARRHYTHMIA [None]
  - CIRCULATORY COLLAPSE [None]
  - CORONARY ARTERY DISEASE [None]
